FAERS Safety Report 19732881 (Version 1)
Quarter: 2021Q3

REPORT INFORMATION
  Report Type: Spontaneous
  Country: US (occurrence: US)
  Receive Date: 20210823
  Receipt Date: 20210823
  Transmission Date: 20211014
  Serious: No
  Sender: FDA-Public Use
  Company Number: US-SA-2021SA274834

PATIENT
  Sex: Female

DRUGS (1)
  1. DUPIXENT [Suspect]
     Active Substance: DUPILUMAB
     Indication: ILLNESS
     Dosage: 300 MG, QOW
     Route: 058

REACTIONS (7)
  - Ankle fracture [Unknown]
  - Product dose omission issue [Unknown]
  - Wrist fracture [Unknown]
  - Unevaluable event [Unknown]
  - Fall [Unknown]
  - Ligament operation [Unknown]
  - Product use in unapproved indication [Unknown]
